FAERS Safety Report 7673776-8 (Version None)
Quarter: 2011Q3

REPORT INFORMATION
  Report Type: 
  Country: None (occurrence: None)
  Receive Date: 20110810
  Receipt Date: 20110802
  Transmission Date: 20111222
  Serious: Yes (Disabling, Other)
  Sender: FDA-Public Use
  Company Number: US-ASTELLAS-2011US004590

PATIENT
  Age: 68 Year
  Sex: Female
  Weight: 54 kg

DRUGS (10)
  1. DETROL LA [Suspect]
     Indication: HYPERTONIC BLADDER
     Dosage: UNK
     Route: 065
     Dates: start: 20100701
  2. OXYBUTYNIN [Suspect]
     Indication: HYPERTONIC BLADDER
     Dosage: UNK
     Route: 065
  3. SYNTHROID [Concomitant]
     Indication: THYROID DISORDER
     Dosage: UNK
     Route: 065
  4. SODIUM CHLORIDE [Concomitant]
     Indication: PRODUCT USED FOR UNKNOWN INDICATION
     Dosage: UNK
     Route: 045
  5. VESICARE [Suspect]
     Indication: HYPERTONIC BLADDER
     Dosage: UNK
     Route: 048
  6. URIBEL [Concomitant]
     Indication: PRODUCT USED FOR UNKNOWN INDICATION
     Dosage: UNK
     Route: 065
  7. FLUOXETINE [Concomitant]
     Indication: DEPRESSION
     Dosage: UNK
     Route: 065
  8. DETROL LA [Suspect]
     Dosage: 4 MG, BID
  9. PROZAC [Concomitant]
     Indication: DEPRESSION
     Dosage: UNK
     Route: 065
  10. FIORICET [Concomitant]
     Indication: PAIN
     Dosage: UNK
     Route: 065

REACTIONS (15)
  - HEADACHE [None]
  - HEART RATE INCREASED [None]
  - CYSTITIS [None]
  - DIZZINESS [None]
  - DISABILITY [None]
  - DYSPEPSIA [None]
  - DRUG INEFFECTIVE [None]
  - SINUSITIS [None]
  - CONSTIPATION [None]
  - CONCUSSION [None]
  - BLADDER SPASM [None]
  - PAIN [None]
  - BLADDER PAIN [None]
  - DRY EYE [None]
  - CORNEAL ABRASION [None]
